FAERS Safety Report 24995220 (Version 1)
Quarter: 2025Q1

REPORT INFORMATION
  Report Type: Spontaneous
  Country: GB (occurrence: GB)
  Receive Date: 20250221
  Receipt Date: 20250221
  Transmission Date: 20250408
  Serious: Yes (Other)
  Sender: TEVA
  Company Number: GB-THERAMEX-2025000352

PATIENT
  Sex: Female

DRUGS (3)
  1. PROGESTERONE [Suspect]
     Active Substance: PROGESTERONE
     Indication: Hormone replacement therapy
     Route: 065
  2. ESTRADIOL\NORETHINDRONE ACETATE [Suspect]
     Active Substance: ESTRADIOL\NORETHINDRONE ACETATE
     Indication: Hormone replacement therapy
     Route: 065
     Dates: start: 2024
  3. ESTRADIOL [Suspect]
     Active Substance: ESTRADIOL
     Indication: Hormone replacement therapy
     Route: 065

REACTIONS (2)
  - Vaginal haemorrhage [Unknown]
  - Feeling abnormal [Unknown]
